FAERS Safety Report 6359205-5 (Version None)
Quarter: 2009Q3

REPORT INFORMATION
  Report Type: 
  Country: None (occurrence: None)
  Receive Date: 20090917
  Receipt Date: 20070511
  Transmission Date: 20100115
  Serious: Yes (Hospitalization, Other)
  Sender: FDA-Public Use
  Company Number: US-ASTRAZENECA-2006UW11326

PATIENT
  Age: 19397 Day
  Sex: Female
  Weight: 77.6 kg

DRUGS (22)
  1. SEROQUEL [Suspect]
     Indication: DEPRESSION
     Route: 048
     Dates: start: 19980101
  2. SEROQUEL [Suspect]
     Dosage: 25-50MG
     Route: 048
     Dates: start: 20000409
  3. ABILIFY [Suspect]
     Dates: start: 19980101
  4. ABILIFY [Suspect]
     Dates: start: 20000101
  5. THORAZINE [Suspect]
     Dates: start: 19980101
  6. THORAZINE [Suspect]
     Dates: start: 20060101
  7. ZYPREXA [Suspect]
     Dates: start: 19980101
  8. ZYPREXA [Suspect]
     Dates: start: 20000101
  9. RISPERDAL [Suspect]
     Dates: start: 19980101
  10. RISPERDAL [Suspect]
     Dates: start: 20060101
  11. STELAZINE [Concomitant]
  12. NAVANE [Concomitant]
  13. XANAX [Concomitant]
     Dosage: 0.5-1MG
     Route: 048
     Dates: start: 19990814
  14. ASPIRIN [Concomitant]
     Dosage: 325-500MG
     Dates: start: 19990814
  15. ESTRADIOL [Concomitant]
     Dosage: 1-2MG
     Dates: start: 19980305
  16. PAXIL [Concomitant]
     Dosage: 20-30MG
     Route: 048
     Dates: start: 19990601
  17. PLAVIX [Concomitant]
     Route: 048
     Dates: start: 19990814
  18. ATENOLOL [Concomitant]
     Route: 048
     Dates: start: 19980305
  19. LEVOXYL/SYNTHROID [Concomitant]
     Dosage: 25-125MCG
     Route: 048
     Dates: start: 19980306
  20. EFFEXOR [Concomitant]
     Dosage: 75-150MG
     Route: 048
     Dates: start: 20030822
  21. LIPITOR [Concomitant]
     Route: 048
     Dates: start: 20010329
  22. IMDUR [Concomitant]
     Dosage: 30-60MG
     Route: 048
     Dates: start: 20030113

REACTIONS (18)
  - ANGINA PECTORIS [None]
  - ARRHYTHMIA [None]
  - ARTERIOSCLEROSIS [None]
  - CARDIAC FAILURE CONGESTIVE [None]
  - CHEST PAIN [None]
  - CORONARY ARTERY DISEASE [None]
  - DEPRESSION [None]
  - DIABETES MELLITUS [None]
  - DYSTHYMIC DISORDER [None]
  - HYPERTENSIVE HEART DISEASE [None]
  - MAJOR DEPRESSION [None]
  - MUSCULOSKELETAL CHEST PAIN [None]
  - PANCREATITIS [None]
  - PANCREATITIS ACUTE [None]
  - PANCREATITIS CHRONIC [None]
  - TACHYCARDIA [None]
  - TYPE 2 DIABETES MELLITUS [None]
  - VENTRICULAR EXTRASYSTOLES [None]
